FAERS Safety Report 9151763 (Version 1)
Quarter: 2013Q1

REPORT INFORMATION
  Report Type: Report from Study
  Country: AT (occurrence: AT)
  Receive Date: 20130308
  Receipt Date: 20130308
  Transmission Date: 20140127
  Serious: Yes (Hospitalization)
  Sender: FDA-Public Use
  Company Number: AT-BAYER-2013-025978

PATIENT
  Age: 77 Year
  Sex: Male

DRUGS (2)
  1. SORAFENIB (RAF KINASE INHIBITOR) [Suspect]
     Indication: HEPATOCELLULAR CARCINOMA
     Dosage: 400 MG, DAILY DOSE
     Route: 048
     Dates: start: 20120816, end: 20130218
  2. EVEROLIMUS [Suspect]
     Indication: HEPATOCELLULAR CARCINOMA
     Dosage: 2.5 MG, DAILY DOSE
     Route: 048
     Dates: start: 20120816, end: 20130218

REACTIONS (3)
  - Hepatic function abnormal [Recovered/Resolved with Sequelae]
  - Ascites [Recovered/Resolved with Sequelae]
  - Fatigue [Recovered/Resolved with Sequelae]
